FAERS Safety Report 5354443-2 (Version None)
Quarter: 2007Q2

REPORT INFORMATION
  Report Type: 
  Country: None (occurrence: None)
  Receive Date: 20070608
  Receipt Date: 20070601
  Transmission Date: 20071010
  Serious: Yes (Hospitalization)
  Sender: FDA-Public Use
  Company Number: 163-21880-07030775

PATIENT
  Age: 68 Year
  Sex: Male

DRUGS (1)
  1. REVLIMID [Suspect]
     Indication: MULTIPLE MYELOMA
     Dosage: 25 MG, QHS X 21 DAYS, ORAL
     Route: 048
     Dates: start: 20061129

REACTIONS (2)
  - URETHRAL STENOSIS [None]
  - URINARY TRACT INFECTION [None]
